FAERS Safety Report 12815277 (Version 4)
Quarter: 2017Q3

REPORT INFORMATION
  Report Type: Report from Study
  Country: US (occurrence: US)
  Receive Date: 20161005
  Receipt Date: 20170901
  Transmission Date: 20171127
  Serious: Yes (Other)
  Sender: FDA-Public Use
  Company Number: US-INCYTE CORPORATION-2016IN003712

PATIENT

DRUGS (33)
  1. ROTIGOTINE [Concomitant]
     Active Substance: ROTIGOTINE
     Indication: RESTLESS LEGS SYNDROME
     Dosage: 1 MG, QD
     Dates: start: 20170117
  2. ANAGRELIDE. [Concomitant]
     Active Substance: ANAGRELIDE HYDROCHLORIDE
     Indication: POLYCYTHAEMIA VERA
     Dosage: 0.5 MG, BID
     Dates: start: 2011, end: 20160411
  3. MICROZIDE                          /00022001/ [Concomitant]
     Dosage: 25 MG, BID
     Route: 048
     Dates: start: 20161101, end: 20170508
  4. VIBRAMYCIN [Concomitant]
     Active Substance: DOXYCYCLINE
     Indication: ACUTE SINUSITIS
  5. LEVAQUIN [Concomitant]
     Active Substance: LEVOFLOXACIN
     Indication: ENTEROCOCCAL BACTERAEMIA
     Dosage: 750 MG, QOD
     Dates: start: 20161121, end: 20161123
  6. ROTIGOTINE [Concomitant]
     Active Substance: ROTIGOTINE
     Dosage: 3 MG, QD
     Dates: start: 20170220
  7. MIRAPEX [Concomitant]
     Active Substance: PRAMIPEXOLE DIHYDROCHLORIDE
     Indication: RESTLESS LEGS SYNDROME
     Dosage: 0.25 MG, QD
     Route: 048
     Dates: start: 2005
  8. TRADJENTA [Concomitant]
     Active Substance: LINAGLIPTIN
     Indication: TYPE 2 DIABETES MELLITUS
     Dosage: 5 MG, QD
     Dates: start: 20151021, end: 20160422
  9. VIBRAMYCIN [Concomitant]
     Active Substance: DOXYCYCLINE
     Indication: OCULAR ROSACEA
     Dosage: 100 MG, BID
     Route: 048
     Dates: start: 20160711, end: 20160718
  10. AMPICILLIN [Concomitant]
     Active Substance: AMPICILLIN
     Indication: ENTEROCOCCAL BACTERAEMIA
     Dosage: 12 G, QD
     Dates: start: 20161123, end: 20161214
  11. LASIX [Concomitant]
     Active Substance: FUROSEMIDE
     Dosage: 20 MG, UNK
     Dates: start: 20170202, end: 20170508
  12. PRAMIPEXOLE. [Concomitant]
     Active Substance: PRAMIPEXOLE
     Indication: RESTLESS LEGS SYNDROME
     Dosage: 0.25 MG, (2 Q 3PM AND 1 Q 7PM)
     Route: 048
     Dates: start: 20160802, end: 20170110
  13. ROCEPHIN [Concomitant]
     Active Substance: CEFTRIAXONE SODIUM
     Indication: ENTEROCOCCAL BACTERAEMIA
     Dosage: 2 G, QD
     Dates: start: 20161121, end: 20161123
  14. VANCOCIN [Concomitant]
     Active Substance: VANCOMYCIN HYDROCHLORIDE
     Indication: ENTEROCOCCAL BACTERAEMIA
     Dosage: 1750 MG, QD
     Dates: start: 20161121, end: 20161121
  15. JAKAFI [Suspect]
     Active Substance: RUXOLITINIB
     Dosage: 15 MG, QD
     Route: 048
     Dates: start: 20160512, end: 20160629
  16. GLUCOTROL [Concomitant]
     Active Substance: GLIPIZIDE
     Indication: TYPE 2 DIABETES MELLITUS
     Dosage: 5 MG, QD
     Route: 048
     Dates: start: 201509
  17. COZAAR [Concomitant]
     Active Substance: LOSARTAN POTASSIUM
     Indication: HYPERTENSION
     Dosage: 25 MG, QD
     Route: 048
     Dates: start: 2013
  18. GLUCOPHAGE [Concomitant]
     Active Substance: METFORMIN HYDROCHLORIDE
     Indication: TYPE 2 DIABETES MELLITUS
     Dosage: 1000 MG, BID
     Route: 048
     Dates: start: 2008
  19. MICROZIDE                          /00022001/ [Concomitant]
     Dosage: 25 MG, QD
     Route: 048
     Dates: start: 20170509
  20. KLOR-CON [Concomitant]
     Active Substance: POTASSIUM CHLORIDE
     Indication: HYPOKALAEMIA
     Dosage: 20 MEQ, QD
     Route: 048
     Dates: start: 2010
  21. NEXIUM [Concomitant]
     Active Substance: ESOMEPRAZOLE MAGNESIUM
     Indication: GASTROOESOPHAGEAL REFLUX DISEASE
     Dosage: 40 MG, QD
     Dates: start: 201503, end: 20160521
  22. MIRAPEX [Concomitant]
     Active Substance: PRAMIPEXOLE DIHYDROCHLORIDE
     Dosage: 0.5 MG, QHS
     Route: 048
     Dates: start: 2005, end: 20160801
  23. JAKAFI [Suspect]
     Active Substance: RUXOLITINIB
     Indication: POLYCYTHAEMIA VERA
     Dosage: 15 MG, BID
     Route: 048
     Dates: start: 20160412, end: 20160511
  24. ECOTRIN [Concomitant]
     Active Substance: ASPIRIN
     Indication: POLYCYTHAEMIA VERA
     Dosage: 81 MG, QD
     Route: 048
     Dates: start: 2014
  25. METROGEL [Concomitant]
     Active Substance: METRONIDAZOLE
     Indication: ROSACEA
     Dosage: 1 APPLICATION, QD
     Route: 061
     Dates: start: 201506
  26. CYMBALTA [Concomitant]
     Active Substance: DULOXETINE HYDROCHLORIDE
     Indication: NEUROPATHY PERIPHERAL
     Dosage: 30 MG, QD
     Dates: start: 20170807
  27. NORVASC [Concomitant]
     Active Substance: AMLODIPINE BESYLATE
     Indication: HYPERTENSION
     Dosage: 5 MG, QD
     Route: 048
     Dates: start: 2013
  28. TENORMIN [Concomitant]
     Active Substance: ATENOLOL
     Indication: HYPERTENSION
     Dosage: 100 MG, QD
     Route: 048
     Dates: start: 2010
  29. LYRICA [Concomitant]
     Active Substance: PREGABALIN
     Indication: NEUROPATHY PERIPHERAL
     Dosage: 300 MG, QD
     Route: 048
     Dates: start: 2014, end: 20170221
  30. FERROUS SULFATE. [Concomitant]
     Active Substance: FERROUS SULFATE
     Indication: RESTLESS LEGS SYNDROME
     Dosage: 325 MG, TID
     Dates: start: 20170117
  31. CLINDAMYCIN. [Concomitant]
     Active Substance: CLINDAMYCIN
     Indication: CELLULITIS
     Dosage: 300 MG, TID
     Dates: start: 20151018, end: 20151025
  32. MICROZIDE                          /00022001/ [Concomitant]
     Indication: HYPERTENSION
     Dosage: 25 MG, QD
     Route: 048
     Dates: start: 2012, end: 20161031
  33. LASIX [Concomitant]
     Active Substance: FUROSEMIDE
     Indication: LOCALISED OEDEMA
     Dosage: 20 MG, QD
     Dates: start: 20161201, end: 20170201

REACTIONS (9)
  - Dyspnoea [Recovered/Resolved]
  - Myalgia [Recovered/Resolved]
  - Ocular rosacea [Recovered/Resolved]
  - Cellulitis [Recovered/Resolved]
  - Abdominal distension [Recovered/Resolved]
  - Weight increased [Recovered/Resolved]
  - Alanine aminotransferase increased [Recovered/Resolved]
  - Blood bilirubin increased [Not Recovered/Not Resolved]
  - Abdominal pain [Recovered/Resolved]

NARRATIVE: CASE EVENT DATE: 20160426
